FAERS Safety Report 12353756 (Version 1)
Quarter: 2016Q2

REPORT INFORMATION
  Report Type: Spontaneous
  Country: GB (occurrence: GB)
  Receive Date: 20160511
  Receipt Date: 20160511
  Transmission Date: 20160815
  Serious: Yes (Other)
  Sender: FDA-Public Use
  Company Number: GB-RECKITT BENCKISER HEALTHCARE INT LIMITED-RB-85295-2016

PATIENT
  Age: 44 Year
  Sex: Female
  Weight: 57.15 kg

DRUGS (2)
  1. PULMICORT TURBUHALER [Concomitant]
     Active Substance: BUDESONIDE
     Indication: ASTHMA
     Dosage: UNK
     Route: 065
  2. UNSPECIFIED HYDROCORTISONE ACETATE [Suspect]
     Active Substance: HYDROCORTISONE ACETATE
     Indication: EYE SWELLING
     Dosage: 1 DF, BID
     Route: 061
     Dates: start: 20160125, end: 20160421

REACTIONS (2)
  - Skin atrophy [Not Recovered/Not Resolved]
  - Skin wrinkling [Not Recovered/Not Resolved]

NARRATIVE: CASE EVENT DATE: 20160307
